FAERS Safety Report 9087479 (Version 1)
Quarter: 2013Q1

REPORT INFORMATION
  Report Type: Report from Study
  Country: US (occurrence: US)
  Receive Date: 20130201
  Receipt Date: 20130201
  Transmission Date: 20140127
  Serious: No
  Sender: FDA-Public Use
  Company Number: US-ABBOTT-12P-163-1024503-00

PATIENT
  Age: 80 Year
  Sex: Female

DRUGS (13)
  1. HUMIRA [Suspect]
     Indication: CROHN^S DISEASE
     Dates: start: 20110812
  2. TRAMADOL [Concomitant]
     Indication: CROHN^S DISEASE
  3. TRAMADOL [Concomitant]
     Indication: HEADACHE
  4. ACIDOPHILUS PROBIOTIC [Concomitant]
     Indication: PROPHYLAXIS
  5. ADVAIR [Concomitant]
     Indication: ASTHMA
     Dosage: 250/50
  6. IRON [Concomitant]
     Indication: BLOOD IRON DECREASED
     Dosage: SLOW RELEASE
  7. ALBUTEROL [Concomitant]
     Indication: ASTHMA
     Dosage: INHALER
  8. TYLENOL [Concomitant]
     Indication: PAIN
  9. BENADRYL [Concomitant]
     Indication: HYPERSENSITIVITY
  10. ASACOL [Concomitant]
     Indication: CROHN^S DISEASE
  11. ZYRTEC [Concomitant]
     Indication: HYPERSENSITIVITY
     Dosage: 1 TAB DAILY
  12. VITAMIN 15 [Concomitant]
  13. VITAMIN D2 [Concomitant]
     Dosage: WEEKLY

REACTIONS (10)
  - Pyrexia [Not Recovered/Not Resolved]
  - Headache [Not Recovered/Not Resolved]
  - Respiratory tract congestion [Not Recovered/Not Resolved]
  - Pyrexia [Not Recovered/Not Resolved]
  - Influenza [Not Recovered/Not Resolved]
  - Vitamin B12 deficiency [Not Recovered/Not Resolved]
  - Vitamin D deficiency [Not Recovered/Not Resolved]
  - Blood iron decreased [Not Recovered/Not Resolved]
  - Chest discomfort [Not Recovered/Not Resolved]
  - Cough [Not Recovered/Not Resolved]
